FAERS Safety Report 7643171-6 (Version None)
Quarter: 2011Q3

REPORT INFORMATION
  Report Type: 
  Country: None (occurrence: None)
  Receive Date: 20110729
  Receipt Date: 20110720
  Transmission Date: 20111222
  Serious: No
  Sender: FDA-Public Use
  Company Number: GR-BIOGENIDEC-2011BI020502

PATIENT
  Age: 35 Year
  Sex: Female
  Weight: 58 kg

DRUGS (2)
  1. AVONEX [Suspect]
     Indication: DEMYELINATION
     Route: 030
     Dates: start: 20101101, end: 20110501
  2. AVONEX [Suspect]
     Route: 030
     Dates: start: 20110501

REACTIONS (2)
  - ERYTHEMA [None]
  - PRURITUS [None]
